FAERS Safety Report 23199816 (Version 6)
Quarter: 2025Q1

REPORT INFORMATION
  Report Type: Spontaneous
  Country: US (occurrence: US)
  Receive Date: 20231117
  Receipt Date: 20250303
  Transmission Date: 20250409
  Serious: No
  Sender: PFIZER
  Company Number: US-PFIZER INC-PV202300186078

PATIENT
  Age: 74 Year
  Sex: Female
  Weight: 79.365 kg

DRUGS (6)
  1. IBRANCE [Suspect]
     Active Substance: PALBOCICLIB
     Indication: Breast cancer female
  2. IBRANCE [Suspect]
     Active Substance: PALBOCICLIB
     Route: 048
     Dates: start: 20230427
  3. IBRANCE [Suspect]
     Active Substance: PALBOCICLIB
     Dates: start: 202502
  4. XGEVA [Concomitant]
     Active Substance: DENOSUMAB
     Dates: start: 202305
  5. FULVESTRANT [Concomitant]
     Active Substance: FULVESTRANT
     Dates: start: 202310
  6. ARIMIDEX [Concomitant]
     Active Substance: ANASTROZOLE
     Dates: start: 202304, end: 202310

REACTIONS (3)
  - Cerebral disorder [Recovered/Resolved]
  - Fatigue [Recovered/Resolved]
  - Intentional product misuse [Unknown]

NARRATIVE: CASE EVENT DATE: 20250201
